FAERS Safety Report 5047502-5 (Version None)
Quarter: 2006Q2

REPORT INFORMATION
  Report Type: 
  Country: None (occurrence: None)
  Receive Date: 20060601
  Receipt Date: 20060325
  Transmission Date: 20061013
  Serious: No
  Sender: FDA-Public Use
  Company Number: 2006PV010956

PATIENT
  Age: 59 Year
  Sex: Male
  Weight: 119.7496 kg

DRUGS (9)
  1. BYETTA [Suspect]
     Indication: DIABETES MELLITUS NON-INSULIN-DEPENDENT
     Dosage: 5 MCG; BID; SC
     Route: 058
     Dates: start: 20060228, end: 20060301
  2. METFORMIN HCL [Concomitant]
  3. AMARYL [Concomitant]
  4. MINOXIDIL [Concomitant]
  5. ACCUPRIL [Concomitant]
  6. NEURONTIN [Concomitant]
  7. LASIX [Concomitant]
  8. GLUCOPHAGE [Concomitant]
  9. SYNTHROID [Concomitant]

REACTIONS (7)
  - ANOREXIA [None]
  - BLOOD PRESSURE DECREASED [None]
  - ERYTHEMA [None]
  - INJECTION SITE BRUISING [None]
  - INJECTION SITE URTICARIA [None]
  - RASH [None]
  - WEIGHT DECREASED [None]
